FAERS Safety Report 9981345 (Version 2)
Quarter: 2014Q1

REPORT INFORMATION
  Report Type: Spontaneous
  Country: IT (occurrence: IT)
  Receive Date: 20140307
  Receipt Date: 20140325
  Transmission Date: 20141002
  Serious: Yes (Hospitalization, Other)
  Sender: FDA-Public Use
  Company Number: IT-TEVA-466301ISR

PATIENT
  Age: 70 Year
  Sex: Male

DRUGS (12)
  1. G-CSF (TEVAGRASTIM/RATIOGRASTIM) [Suspect]
     Indication: NEUTROPENIA
     Route: 058
     Dates: start: 20130316, end: 20130320
  2. ALLOPURINOLO [Suspect]
     Route: 048
     Dates: start: 20130201, end: 20130320
  3. ARANESP [Suspect]
     Indication: ANAEMIA
     Route: 058
     Dates: start: 20130312, end: 20130320
  4. CICLOFOSFAMIDE [Concomitant]
     Indication: CHRONIC LYMPHOCYTIC LEUKAEMIA
     Dosage: 750 MILLIGRAM DAILY;
     Route: 042
     Dates: start: 20130131
  5. ACICLOVIR [Concomitant]
  6. MABTHERA [Concomitant]
     Indication: CHRONIC LYMPHOCYTIC LEUKAEMIA
     Dosage: 690 MILLIGRAM DAILY;
     Route: 042
     Dates: start: 20130131
  7. FLUDARA [Concomitant]
     Indication: CHRONIC LYMPHOCYTIC LEUKAEMIA
     Dosage: 111 MILLIGRAM DAILY;
     Route: 042
  8. BACTRIM [Concomitant]
  9. METHYLPREDNISOLONE [Concomitant]
  10. LORATADINE [Concomitant]
  11. OMEPRAZOLE [Concomitant]
  12. RITUXIMAB [Concomitant]

REACTIONS (3)
  - Dermatitis exfoliative [Recovering/Resolving]
  - Lichenoid keratosis [Recovering/Resolving]
  - Skin hyperpigmentation [Unknown]
